FAERS Safety Report 11429442 (Version 1)
Quarter: 2015Q3

REPORT INFORMATION
  Report Type: Report from Study
  Country: US (occurrence: US)
  Receive Date: 20150828
  Receipt Date: 20150828
  Transmission Date: 20151125
  Serious: Yes (Hospitalization)
  Sender: FDA-Public Use
  Company Number: US-UNITED THERAPEUTICS LTD.-UTC-020828

PATIENT
  Age: 65 Year
  Sex: Male
  Weight: 69.7 kg

DRUGS (22)
  1. ZOFRAN [Concomitant]
     Active Substance: ONDANSETRON HYDROCHLORIDE
     Indication: NAUSEA
     Dosage: 4 MG PRN
     Route: 048
     Dates: start: 20120417
  2. OMEPRAZOLE. [Concomitant]
     Active Substance: OMEPRAZOLE
     Indication: GASTROOESOPHAGEAL REFLUX DISEASE
     Route: 048
     Dates: start: 19991124
  3. UT-15C SR [Suspect]
     Active Substance: TREPROSTINIL DIOLAMINE
     Indication: PULMONARY ARTERIAL HYPERTENSION
     Route: 048
     Dates: start: 20120308
  4. BUMETANIDE. [Suspect]
     Active Substance: BUMETANIDE
     Indication: PULMONARY ARTERIAL HYPERTENSION
  5. LASIX [Suspect]
     Active Substance: FUROSEMIDE
     Route: 048
     Dates: start: 20100727, end: 20120708
  6. FERROUS SULFATE [Concomitant]
     Active Substance: FERROUS SULFATE\FERROUS SULFATE, DRIED
     Indication: SUPPLEMENTATION THERAPY
     Route: 048
     Dates: start: 20050125, end: 20120831
  7. IMODIUM [Concomitant]
     Active Substance: LOPERAMIDE HYDROCHLORIDE
     Indication: DIARRHOEA
     Route: 048
     Dates: start: 20120509
  8. UT-15C SR [Suspect]
     Active Substance: TREPROSTINIL DIOLAMINE
     Route: 048
     Dates: start: 20120718
  9. UT-15C SR [Suspect]
     Active Substance: TREPROSTINIL DIOLAMINE
     Route: 048
     Dates: start: 20120824, end: 20120906
  10. LISINOPRIL. [Concomitant]
     Active Substance: LISINOPRIL
     Indication: HYPERTENSION
     Route: 048
     Dates: start: 19990124, end: 20120708
  11. METOCLOPRAMIDE. [Concomitant]
     Active Substance: METOCLOPRAMIDE
     Indication: GASTROOESOPHAGEAL REFLUX DISEASE
     Route: 048
     Dates: start: 20050125
  12. CARAFATE [Concomitant]
     Active Substance: SUCRALFATE
     Indication: ABDOMINAL DISCOMFORT
     Route: 048
     Dates: start: 20120621, end: 20120708
  13. LOMOTIL [Concomitant]
     Active Substance: ATROPINE SULFATE\DIPHENOXYLATE HYDROCHLORIDE
     Indication: DIARRHOEA
     Dosage: PRN
     Route: 048
     Dates: start: 20090108
  14. LASIX [Suspect]
     Active Substance: FUROSEMIDE
     Indication: DIURETIC THERAPY
  15. METHOTREXATE [Concomitant]
     Active Substance: METHOTREXATE
     Indication: SCLERODERMA
     Route: 048
     Dates: start: 19991124
  16. TYVASO [Suspect]
     Active Substance: TREPROSTINIL
     Indication: PULMONARY ARTERIAL HYPERTENSION
     Dates: start: 20091214
  17. BUMETANIDE. [Suspect]
     Active Substance: BUMETANIDE
     Route: 048
     Dates: start: 201111, end: 20120708
  18. TRACLEER [Concomitant]
     Active Substance: BOSENTAN
     Indication: PULMONARY ARTERIAL HYPERTENSION
     Route: 048
     Dates: start: 20090108
  19. FOLIC ACID. [Concomitant]
     Active Substance: FOLIC ACID
     Indication: SUPPLEMENTATION THERAPY
     Route: 048
     Dates: start: 20050125
  20. BUMETANIDE. [Suspect]
     Active Substance: BUMETANIDE
     Indication: DIURETIC THERAPY
  21. LASIX [Suspect]
     Active Substance: FUROSEMIDE
     Indication: PULMONARY ARTERIAL HYPERTENSION
  22. FLOMAX [Concomitant]
     Active Substance: TAMSULOSIN HYDROCHLORIDE
     Indication: BENIGN PROSTATIC HYPERPLASIA
     Route: 048
     Dates: start: 20090729

REACTIONS (5)
  - Malnutrition [Not Recovered/Not Resolved]
  - Hyponatraemia [Recovered/Resolved]
  - Ascites [Recovering/Resolving]
  - Diarrhoea [Recovering/Resolving]
  - Acute kidney injury [Recovered/Resolved]

NARRATIVE: CASE EVENT DATE: 20120404
